FAERS Safety Report 6554256-X (Version None)
Quarter: 2010Q1

REPORT INFORMATION
  Report Type: 
  Country: None (occurrence: None)
  Receive Date: 20100125
  Receipt Date: 20100125
  Transmission Date: 20100710
  Serious: Yes (Other)
  Sender: FDA-Public Use
  Company Number: None

PATIENT
  Age: 47 Year
  Sex: Female
  Weight: 63.5036 kg

DRUGS (3)
  1. KLONOPIN [Suspect]
     Indication: PANIC DISORDER
     Dosage: .5MG BID PO TAPERED TO 10
     Route: 048
     Dates: start: 20061229, end: 20081124
  2. KLONOPIN [Suspect]
     Indication: PANIC DISORDER
     Dosage: .5MG BID PO TAPERED TO 10
     Route: 048
     Dates: start: 20061124, end: 20090104
  3. KLONOPIN [Suspect]
     Indication: PANIC DISORDER
     Dosage: .5MG BID PO TAPERED TO 10
     Route: 048
     Dates: start: 20081124, end: 20090104

REACTIONS (32)
  - AMNESIA [None]
  - ANXIETY [None]
  - BEDRIDDEN [None]
  - BONE PAIN [None]
  - BURNING MOUTH SYNDROME [None]
  - CEREBROVASCULAR ACCIDENT [None]
  - COGNITIVE DISORDER [None]
  - CONVULSION [None]
  - DEPRESSION [None]
  - DEREALISATION [None]
  - DISTURBANCE IN ATTENTION [None]
  - DRUG TOLERANCE INCREASED [None]
  - DRUG WITHDRAWAL SYNDROME [None]
  - HALLUCINATION [None]
  - HEADACHE [None]
  - HYPERHIDROSIS [None]
  - IMPAIRED WORK ABILITY [None]
  - INSOMNIA [None]
  - IRRITABLE BOWEL SYNDROME [None]
  - MALAISE [None]
  - MUSCLE ATROPHY [None]
  - MUSCULAR WEAKNESS [None]
  - NAUSEA [None]
  - NIGHTMARE [None]
  - PAIN [None]
  - PHOTOSENSITIVITY REACTION [None]
  - SLEEP DISORDER [None]
  - TINNITUS [None]
  - TREMOR [None]
  - VERTIGO [None]
  - VISION BLURRED [None]
  - WEIGHT DECREASED [None]
